FAERS Safety Report 5923562-1 (Version None)
Quarter: 2008Q4

REPORT INFORMATION
  Report Type: 
  Country: None (occurrence: None)
  Receive Date: 20081015
  Receipt Date: 20081002
  Transmission Date: 20090506
  Serious: No
  Sender: FDA-Public Use
  Company Number: TPA2008A01552

PATIENT
  Sex: Male

DRUGS (5)
  1. ACTOS [Suspect]
     Indication: DIABETES MELLITUS
     Dosage: 45 MG, 30 MG, 1 IN 1 D, PER ORAL
     Route: 048
     Dates: start: 20080507, end: 20081002
  2. ACTOS [Suspect]
     Indication: DIABETES MELLITUS
     Dosage: 45 MG, 30 MG, 1 IN 1 D, PER ORAL
     Route: 048
     Dates: start: 20080912
  3. LISINOPRIL [Concomitant]
  4. GLYBURIDE [Concomitant]
  5. METFORMIN HCL [Concomitant]

REACTIONS (3)
  - FEELING ABNORMAL [None]
  - INCORRECT DOSE ADMINISTERED [None]
  - PRODUCT QUALITY ISSUE [None]
